FAERS Safety Report 4641568-X (Version None)
Quarter: 2005Q2

REPORT INFORMATION
  Report Type: 
  Country: None (occurrence: None)
  Receive Date: 20050421
  Receipt Date: 20050407
  Transmission Date: 20051028
  Serious: Yes (Death, Hospitalization)
  Sender: FDA-Public Use
  Company Number: PHEH2005US04064

PATIENT
  Age: 60 Year
  Sex: Female

DRUGS (10)
  1. AREDIA [Suspect]
     Indication: BONE PAIN
     Dosage: 90 MG, QMO
     Route: 042
     Dates: start: 20001005, end: 20040607
  2. THALIDOMIDE [Concomitant]
     Indication: MULTIPLE MYELOMA
     Dosage: 50 MG, QD
     Dates: start: 20040909, end: 20050127
  3. THALIDOMIDE [Concomitant]
     Dosage: 100 MG, UNK
  4. SYNTHROID [Concomitant]
     Indication: HYPOTHYROIDISM
     Dosage: 0.08 MG, QD
  5. PREMARIN [Concomitant]
     Dosage: 0.63 MG, UNK
  6. PREVACID [Concomitant]
     Dosage: 30 MG, QD
  7. FLOVENT [Concomitant]
  8. VENTOLIN HFA [Concomitant]
  9. AMBIEN [Concomitant]
     Indication: INSOMNIA
  10. OXYCONTIN [Concomitant]
     Indication: PAIN
     Dosage: 20 MG, Q12H

REACTIONS (4)
  - BLOOD CREATININE INCREASED [None]
  - HYPOXIA [None]
  - PNEUMONIA [None]
  - RENAL FAILURE [None]
